FAERS Safety Report 15798762 (Version 1)
Quarter: 2019Q1

REPORT INFORMATION
  Report Type: Spontaneous
  Country: CN (occurrence: CN)
  Receive Date: 20190108
  Receipt Date: 20190108
  Transmission Date: 20190417
  Serious: Yes (Other)
  Sender: FDA-Public Use
  Company Number: CN-BAXTER-2019BAX000051

PATIENT
  Age: 90 Year
  Sex: Male
  Weight: 63 kg

DRUGS (4)
  1. 20% MANNITOL INJECTION [Suspect]
     Active Substance: MANNITOL
     Indication: BRAIN CONTUSION
  2. 20% MANNITOL INJECTION [Suspect]
     Active Substance: MANNITOL
     Indication: TRAUMATIC HAEMORRHAGE
  3. 20% MANNITOL INJECTION [Suspect]
     Active Substance: MANNITOL
     Indication: INTRACRANIAL PRESSURE INCREASED
     Route: 041
     Dates: start: 20181021, end: 20181023
  4. 20% MANNITOL INJECTION [Suspect]
     Active Substance: MANNITOL
     Indication: SUBARACHNOID HAEMORRHAGE

REACTIONS (2)
  - Acute kidney injury [Recovering/Resolving]
  - Renal impairment [Recovering/Resolving]

NARRATIVE: CASE EVENT DATE: 20181023
